FAERS Safety Report 22023237 (Version 1)
Quarter: 2023Q1

REPORT INFORMATION
  Report Type: Spontaneous
  Country: US (occurrence: US)
  Receive Date: 20230223
  Receipt Date: 20230223
  Transmission Date: 20230417
  Serious: No
  Sender: FDA-Public Use
  Company Number: US-PADAGIS-2023PAD00112

PATIENT

DRUGS (1)
  1. KETOCONAZOLE [Suspect]
     Active Substance: KETOCONAZOLE
     Indication: Product used for unknown indication
     Dosage: UNK, (AS DIRECTED)
     Route: 065
     Dates: start: 202301, end: 202301

REACTIONS (2)
  - Alopecia [Unknown]
  - Product colour issue [Unknown]

NARRATIVE: CASE EVENT DATE: 20230101
